FAERS Safety Report 7729484-8 (Version None)
Quarter: 2011Q3

REPORT INFORMATION
  Report Type: 
  Country: None (occurrence: None)
  Receive Date: 20110906
  Receipt Date: 20110820
  Transmission Date: 20111222
  Serious: No
  Sender: FDA-Public Use
  Company Number: US-JNJFOC-20110707274

PATIENT
  Sex: Female

DRUGS (4)
  1. INVEGA SUSTENNA [Suspect]
     Indication: PSYCHOTIC DISORDER
     Route: 030
     Dates: start: 20110623
  2. INVEGA SUSTENNA [Suspect]
     Route: 030
     Dates: start: 20110526
  3. INVEGA SUSTENNA [Suspect]
     Route: 030
     Dates: start: 20110429
  4. INVEGA SUSTENNA [Suspect]
     Route: 030
     Dates: start: 20110711

REACTIONS (1)
  - LACTATION DISORDER [None]
